FAERS Safety Report 9520093 (Version 1)
Quarter: 2013Q3

REPORT INFORMATION
  Report Type: Spontaneous
  Country: FR (occurrence: FR)
  Receive Date: 20130912
  Receipt Date: 20130912
  Transmission Date: 20140515
  Serious: Yes (Hospitalization)
  Sender: FDA-Public Use
  Company Number: PHHY2013FR100449

PATIENT
  Age: 75 Year
  Sex: Male
  Weight: 106.5 kg

DRUGS (14)
  1. TEGRETOL LP [Suspect]
     Indication: AFFECTIVE DISORDER
     Dosage: 2 DF DAILY
     Route: 048
  2. TEGRETOL LP [Suspect]
     Dosage: DOSE DECREASED
  3. DIPIPERON [Suspect]
     Indication: ABNORMAL BEHAVIOUR
     Dosage: 2.5 DF DAILY
     Route: 048
     Dates: end: 201307
  4. LAMALINE [Suspect]
     Indication: PAIN
     Dosage: 1 DF, QD
     Route: 048
     Dates: end: 20130712
  5. EBIXA [Concomitant]
     Indication: DEMENTIA
     Dosage: 20 MG, QD
     Route: 048
  6. EPITOMAX [Concomitant]
     Indication: EPILEPSY
     Dosage: 100 MG, BID
     Route: 048
  7. EPITOMAX [Concomitant]
     Dosage: 100 MG, BID
     Route: 048
  8. ALLOPURINOL [Concomitant]
     Indication: GOUT
     Dosage: 1 DF, QD
     Route: 048
  9. TANGANIL [Concomitant]
     Indication: DIZZINESS
     Dosage: 4 DF (500 MG EACH), DAILY
     Route: 048
  10. MOPRAL [Concomitant]
     Indication: GASTROINTESTINAL DISORDER
     Dosage: 20 MG, QD
     Route: 048
  11. DOLIPRANE [Concomitant]
     Indication: PAIN
     Dosage: 3 G, DAILY
     Route: 048
  12. SINGULAIR [Concomitant]
     Indication: RESPIRATORY FAILURE
     Dosage: 10 MG, DAILY
     Route: 048
  13. AERIUS [Concomitant]
     Indication: RESPIRATORY FAILURE
     Dosage: 5 MG, QD
     Route: 048
  14. DIFFU K [Concomitant]
     Indication: MINERAL SUPPLEMENTATION
     Dosage: 1 DF, QD
     Route: 048

REACTIONS (2)
  - Gait disturbance [Recovered/Resolved]
  - Somnolence [Recovering/Resolving]
